FAERS Safety Report 5890150-5 (Version None)
Quarter: 2008Q3

REPORT INFORMATION
  Report Type: 
  Country: None (occurrence: None)
  Receive Date: 20080919
  Receipt Date: 20080908
  Transmission Date: 20090109
  Serious: Yes (Other)
  Sender: FDA-Public Use
  Company Number: JP-PFIZER INC-2008071614

PATIENT
  Age: 54 Year
  Sex: Female

DRUGS (2)
  1. AROMASIN [Suspect]
     Indication: BREAST CANCER
     Route: 048
     Dates: start: 20070918
  2. BASEN [Concomitant]
     Indication: DIABETES MELLITUS
     Route: 048

REACTIONS (1)
  - HAEMATURIA [None]
